FAERS Safety Report 4340058-1 (Version None)
Quarter: 2004Q2

REPORT INFORMATION
  Report Type: 
  Country: None (occurrence: None)
  Receive Date: 20040412
  Receipt Date: 20040326
  Transmission Date: 20050107
  Serious: Yes (Disabling)
  Sender: FDA-Public Use
  Company Number: S04-SWI-01446-01

PATIENT
  Age: 82 Year
  Sex: Male

DRUGS (6)
  1. CIPRALEX (ESCITALOPRAM) [Suspect]
     Indication: DEPRESSION
     Dosage: 20 MG QD PO
     Route: 048
     Dates: start: 20031212, end: 20031226
  2. NEXIUM [Suspect]
     Indication: PROPHYLAXIS
     Dosage: 20 MG QD PO
     Route: 048
     Dates: start: 20031212, end: 20031226
  3. AUGMENTIN [Concomitant]
  4. MORPHIN STREULI (MORPHINE) [Concomitant]
  5. ACETAMINOPHEN [Concomitant]
  6. PREDNISONE [Concomitant]

REACTIONS (4)
  - CHOLELITHIASIS [None]
  - HEPATOCELLULAR DAMAGE [None]
  - PAROTITIS [None]
  - URINARY TRACT INFECTION [None]
